FAERS Safety Report 7759588-5 (Version None)
Quarter: 2011Q3

REPORT INFORMATION
  Report Type: 
  Country: None (occurrence: None)
  Receive Date: 20110919
  Receipt Date: 20110906
  Transmission Date: 20111222
  Serious: No
  Sender: FDA-Public Use
  Company Number: US-JNJFOC-20110902618

PATIENT
  Sex: Male

DRUGS (8)
  1. TYLENOL-500 [Concomitant]
     Indication: PAIN
     Route: 065
  2. HALOPERIDOL [Concomitant]
     Route: 065
  3. HYDROXYZINE [Concomitant]
     Route: 065
  4. TEMAZEPAM [Concomitant]
     Route: 065
  5. INVEGA SUSTENNA [Suspect]
     Indication: SCHIZOAFFECTIVE DISORDER
     Route: 030
     Dates: start: 20110812
  6. DEPAKOTE [Concomitant]
     Route: 065
  7. BENZTROPINE MESYLATE [Concomitant]
     Indication: PRODUCT USED FOR UNKNOWN INDICATION
     Route: 065
  8. LORAZEPAM [Concomitant]
     Route: 065

REACTIONS (1)
  - DRUG DOSE OMISSION [None]
